FAERS Safety Report 4926758-0 (Version None)
Quarter: 2006Q1

REPORT INFORMATION
  Report Type: 
  Country: None (occurrence: None)
  Receive Date: 20060228
  Receipt Date: 20050610
  Transmission Date: 20060701
  Serious: No
  Sender: FDA-Public Use
  Company Number: US-GLAXOSMITHKLINE-A0562104A

PATIENT
  Sex: Male

DRUGS (1)
  1. LAMICTAL [Suspect]
     Dosage: 75MG THREE TIMES PER DAY
     Route: 048
     Dates: start: 20050215

REACTIONS (2)
  - HAIR TEXTURE ABNORMAL [None]
  - HYPOTRICHOSIS [None]
